FAERS Safety Report 18120925 (Version 2)
Quarter: 2020Q3

REPORT INFORMATION
  Report Type: Spontaneous
  Country: US (occurrence: US)
  Receive Date: 20200806
  Receipt Date: 20200914
  Transmission Date: 20201103
  Serious: Yes (Disabling, Other)
  Sender: FDA-Public Use
  Company Number: NVSC2020US217933

PATIENT
  Age: 93 Year
  Sex: Female

DRUGS (4)
  1. BEOVU [Suspect]
     Active Substance: BROLUCIZUMAB-DBLL
     Indication: NEOVASCULAR AGE-RELATED MACULAR DEGENERATION
     Dosage: UNK UNK, QMO
     Route: 031
     Dates: start: 20200522
  2. BEOVU [Suspect]
     Active Substance: BROLUCIZUMAB-DBLL
     Dosage: UNK UNK, QMO (LEFT EYE)
     Route: 031
     Dates: start: 20200717
  3. BEOVU [Suspect]
     Active Substance: BROLUCIZUMAB-DBLL
     Dosage: UNK UNK, QMO
     Route: 031
     Dates: start: 20200619
  4. TAMOXIFEN [Concomitant]
     Active Substance: TAMOXIFEN
     Indication: BREAST CANCER
     Route: 065

REACTIONS (6)
  - Retinal vasculitis [Not Recovered/Not Resolved]
  - Retinal artery occlusion [Not Recovered/Not Resolved]
  - Keratic precipitates [Unknown]
  - Pupillary reflex impaired [Unknown]
  - Blindness [Not Recovered/Not Resolved]
  - Anterior chamber cell [Unknown]

NARRATIVE: CASE EVENT DATE: 20200803
